FAERS Safety Report 4485628-5 (Version None)
Quarter: 2004Q4

REPORT INFORMATION
  Report Type: 
  Country: None (occurrence: None)
  Receive Date: 20041026
  Receipt Date: 20041006
  Transmission Date: 20050328
  Serious: Yes (Hospitalization)
  Sender: FDA-Public Use
  Company Number: US-MERCK-0410USA00940

PATIENT
  Age: 71 Year
  Sex: Male

DRUGS (8)
  1. VIOXX [Suspect]
     Indication: ARTHRITIS
     Route: 048
     Dates: start: 19990101, end: 20030101
  2. ZOCOR [Concomitant]
     Route: 048
  3. ACTONEL [Concomitant]
     Route: 065
  4. PLAVIX [Concomitant]
     Route: 065
  5. NORVASC [Concomitant]
     Route: 065
  6. ASPIRIN [Concomitant]
     Route: 065
  7. ZYRTEC [Concomitant]
     Route: 065
  8. BLOOD THINNER (UNSPECIFIED) [Concomitant]
     Route: 065

REACTIONS (3)
  - CORONARY ARTERY DISEASE [None]
  - MYOCARDIAL INFARCTION [None]
  - THROMBOSIS [None]
